FAERS Safety Report 23326021 (Version 8)
Quarter: 2024Q2

REPORT INFORMATION
  Report Type: Spontaneous
  Country: US (occurrence: US)
  Receive Date: 20231221
  Receipt Date: 20240510
  Transmission Date: 20240716
  Serious: No
  Sender: FDA-Public Use
  Company Number: US-PFIZER INC-PV202300198819

PATIENT
  Age: 10 Year
  Sex: Male
  Weight: 32.1 kg

DRUGS (1)
  1. GENOTROPIN [Suspect]
     Active Substance: SOMATROPIN
     Indication: Growth hormone deficiency
     Dosage: 1.4 MG, 1X/DAY
     Dates: start: 20231114, end: 2024

REACTIONS (2)
  - Device leakage [Unknown]
  - Drug dose omission by device [Unknown]
